FAERS Safety Report 6422314-6 (Version None)
Quarter: 2009Q4

REPORT INFORMATION
  Report Type: 
  Country: None (occurrence: None)
  Receive Date: 20091030
  Receipt Date: 20091022
  Transmission Date: 20100525
  Serious: Yes (Hospitalization, Other)
  Sender: FDA-Public Use
  Company Number: GB-PFIZER INC-2009263942

PATIENT
  Age: 70 Year

DRUGS (4)
  1. DOXAZOSIN MESILATE [Suspect]
     Indication: HYPERTENSION
     Dosage: UNK
     Route: 048
  2. TAMSULOSIN [Suspect]
     Indication: BENIGN PROSTATIC HYPERPLASIA
     Dosage: 0.4 MG, UNK
     Route: 048
  3. CYCLOPENTOLATE [Concomitant]
     Indication: CATARACT OPERATION
     Dosage: 1 %, 1 DROP
     Route: 047
  4. PHENYLEPHRINE [Concomitant]
     Indication: CATARACT OPERATION
     Dosage: 2.5 %, 1 DROP
     Route: 047

REACTIONS (1)
  - FLOPPY IRIS SYNDROME [None]
